FAERS Safety Report 21458859 (Version 1)
Quarter: 2022Q4

REPORT INFORMATION
  Report Type: Spontaneous
  Country: FR (occurrence: None)
  Receive Date: 20221014
  Receipt Date: 20221014
  Transmission Date: 20230112
  Serious: Yes (Hospitalization)
  Sender: FDA-Public Use
  Company Number: 2022A339232

PATIENT
  Age: 48 Year
  Sex: Male
  Weight: 79 kg

DRUGS (1)
  1. FASENRA [Suspect]
     Active Substance: BENRALIZUMAB
     Indication: Asthma
     Route: 058
     Dates: start: 2019, end: 202101

REACTIONS (1)
  - Pemphigus [Recovering/Resolving]

NARRATIVE: CASE EVENT DATE: 20200301
